FAERS Safety Report 5678124-0 (Version None)
Quarter: 2008Q1

REPORT INFORMATION
  Report Type: 
  Country: None (occurrence: None)
  Receive Date: 20080324
  Receipt Date: 20080324
  Transmission Date: 20080703
  Serious: Yes (Other)
  Sender: FDA-Public Use
  Company Number: None

PATIENT
  Age: 61 Year
  Sex: Female
  Weight: 99.7913 kg

DRUGS (3)
  1. METOPROLOL SUCCINATE [Suspect]
     Indication: BLOOD PRESSURE INCREASED
     Dosage: 100 MG DAILY 1/DAY PO
     Route: 048
     Dates: start: 20000101, end: 20080321
  2. METOPROLOL SUCCINATE [Suspect]
     Indication: TACHYCARDIA
     Dosage: 100 MG DAILY 1/DAY PO
     Route: 048
     Dates: start: 20000101, end: 20080321
  3. TOPROL-XL [Suspect]

REACTIONS (4)
  - HEART RATE INCREASED [None]
  - HYPERTENSION [None]
  - PHARMACEUTICAL PRODUCT COMPLAINT [None]
  - THERAPEUTIC RESPONSE UNEXPECTED WITH DRUG SUBSTITUTION [None]
